FAERS Safety Report 15976016 (Version 2)
Quarter: 2019Q1

REPORT INFORMATION
  Report Type: Spontaneous
  Country: TR (occurrence: TR)
  Receive Date: 20190218
  Receipt Date: 20190307
  Transmission Date: 20190418
  Serious: Yes (Other)
  Sender: FDA-Public Use
  Company Number: PHHY2019TR037030

PATIENT
  Age: 17 Year
  Sex: Male

DRUGS (5)
  1. REVOLADE [Suspect]
     Active Substance: ELTROMBOPAG
     Dosage: 25 MG, UNK
     Route: 065
     Dates: start: 201812
  2. REVOLADE [Suspect]
     Active Substance: ELTROMBOPAG
     Indication: PURPURA
     Dosage: 1 OT (25 MG)
     Route: 065
     Dates: start: 201809
  3. REVOLADE [Suspect]
     Active Substance: ELTROMBOPAG
     Dosage: 25 MG, UNK
     Route: 065
     Dates: start: 201811
  4. REVOLADE [Suspect]
     Active Substance: ELTROMBOPAG
     Dosage: 50 MG, UNK
     Route: 065
  5. REVOLADE [Suspect]
     Active Substance: ELTROMBOPAG
     Dosage: 1 OT, QD (TOTAL REVOLADE DOSE 75 MG DAILY)
     Route: 065
     Dates: start: 201901

REACTIONS (2)
  - White blood cell count decreased [Recovered/Resolved]
  - Drug ineffective [Unknown]
